FAERS Safety Report 5696603-7 (Version None)
Quarter: 2008Q2

REPORT INFORMATION
  Report Type: 
  Country: None (occurrence: None)
  Receive Date: 20080408
  Receipt Date: 20080403
  Transmission Date: 20081010
  Serious: Yes (Death, Hospitalization)
  Sender: FDA-Public Use
  Company Number: US-WYE-H03428408

PATIENT
  Sex: Female
  Weight: 103.06 kg

DRUGS (13)
  1. RAPAMUNE [Suspect]
     Indication: METASTATIC RENAL CELL CARCINOMA
     Route: 048
     Dates: start: 20070412, end: 20070506
  2. METOPROLOL TARTRATE [Concomitant]
     Dosage: 100 MG, FREQUENCY UNSPECIFIED
     Route: 065
  3. NORVASC [Concomitant]
     Dosage: 5MG, FREQUENCY UNSPECIFIED
     Route: 065
  4. SPIRONOLACTONE [Concomitant]
     Dosage: 25 MG, FREQUENCY UNSPECIFIED
     Route: 065
  5. RAMIPRIL [Concomitant]
     Dosage: 10 MG, FREQUENCY UNSPECIFIED
     Route: 065
  6. OXYCODONE HCL [Concomitant]
     Dosage: 5 MG, FREQUENCY UNSPECIFIED
     Route: 065
  7. SYNTHROID [Concomitant]
     Dosage: 0.225 MG, FREQUENCY UNSPECIFIED
     Route: 065
     Dates: end: 20070516
  8. SYNTHROID [Concomitant]
     Dosage: DOSE UNKNOWN
     Route: 065
     Dates: start: 20070517
  9. MULTI-VITAMINS [Concomitant]
     Dosage: UNKNOWN, DAILY
     Route: 065
  10. ASCORBIC ACID [Concomitant]
     Dosage: 500 MG, FREQUENCY UNSPECIFIED
     Route: 065
  11. ALEVE [Concomitant]
     Dosage: DOSAGE UNKNOWN
     Route: 065
  12. ERLOTINIB [Suspect]
     Indication: METASTATIC RENAL CELL CARCINOMA
     Route: 048
     Dates: start: 20070412, end: 20070506
  13. POTASSIUM CHLORIDE [Concomitant]
     Dosage: 60 MEQ, FREQUENCY UNSPECIFIED
     Route: 065

REACTIONS (8)
  - ANAEMIA [None]
  - ATRIAL FIBRILLATION [None]
  - HYPERGLYCAEMIA [None]
  - HYPOTENSION [None]
  - HYPOTHYROIDISM [None]
  - ILEUS [None]
  - PSEUDOMONAL SEPSIS [None]
  - RENAL CANCER METASTATIC [None]
